FAERS Safety Report 13789226 (Version 2)
Quarter: 2017Q3

REPORT INFORMATION
  Report Type: Report from Study
  Country: JP (occurrence: JP)
  Receive Date: 20170725
  Receipt Date: 20170830
  Transmission Date: 20171127
  Serious: Yes (Death, Hospitalization, Disabling)
  Sender: FDA-Public Use
  Company Number: JP-SHIRE-JP201713686AA

PATIENT
  Age: 86 Year
  Sex: Male

DRUGS (6)
  1. 422 (ANAGRELIDE) [Suspect]
     Active Substance: ANAGRELIDE
     Dosage: 1.0 MG/DAY
     Route: 048
     Dates: start: 20141226, end: 20150212
  2. 422 (ANAGRELIDE) [Suspect]
     Active Substance: ANAGRELIDE
     Dosage: 2.0 MG/DAY
     Route: 048
     Dates: start: 20150313, end: 20150422
  3. 422 (ANAGRELIDE) [Suspect]
     Active Substance: ANAGRELIDE
     Dosage: 3.0 MG/DAY
     Route: 048
     Dates: start: 20150423, end: 20150528
  4. 422 (ANAGRELIDE) [Suspect]
     Active Substance: ANAGRELIDE
     Indication: ESSENTIAL THROMBOCYTHAEMIA
     Dosage: 2.0 MG/DAY
     Route: 048
     Dates: start: 20150529, end: 20150619
  5. 422 (ANAGRELIDE) [Suspect]
     Active Substance: ANAGRELIDE
     Dosage: 1.5 MG/DAY
     Route: 048
     Dates: start: 20150213, end: 20150312
  6. HYDREA [Concomitant]
     Active Substance: HYDROXYUREA
     Indication: ESSENTIAL THROMBOCYTHAEMIA
     Dosage: 500 MG/DAY
     Route: 065
     Dates: start: 20140606, end: 20150108

REACTIONS (2)
  - Cardiac failure [Fatal]
  - Renal impairment [Unknown]

NARRATIVE: CASE EVENT DATE: 20150227
